FAERS Safety Report 6697753-9 (Version None)
Quarter: 2010Q2

REPORT INFORMATION
  Report Type: 
  Country: None (occurrence: None)
  Receive Date: 20100423
  Receipt Date: 20100413
  Transmission Date: 20101027
  Serious: Yes (Disabling, Other)
  Sender: FDA-Public Use
  Company Number: TRP_06919_2010

PATIENT
  Sex: Female

DRUGS (10)
  1. INFERGEN [Suspect]
     Indication: HEPATITIS C
     Dosage: (15 UG QD, SUBCUTANEOUS)
     Route: 058
     Dates: end: 20100330
  2. RIBAVIRIN [Suspect]
     Indication: HEPATITIS C
     Dosage: (400 MG BID ORAL)
     Route: 048
     Dates: end: 20100330
  3. LEXAPRO [Concomitant]
  4. CALRTATE D [Concomitant]
  5. GABAPENTIN [Concomitant]
  6. AROMASIN [Concomitant]
  7. PROTONIX [Concomitant]
  8. HYDROCODONE BITARTRATE [Concomitant]
  9. TEMAZEPAM [Concomitant]
  10. PROCRIT /00909301/ [Concomitant]

REACTIONS (3)
  - EYE HAEMORRHAGE [None]
  - IMPAIRED DRIVING ABILITY [None]
  - OPTIC ISCHAEMIC NEUROPATHY [None]
